FAERS Safety Report 9110784 (Version 1)
Quarter: 2013Q1

REPORT INFORMATION
  Report Type: Spontaneous
  Country: US (occurrence: US)
  Receive Date: 20130219
  Receipt Date: 20130219
  Transmission Date: 20140127
  Serious: Yes (Other)
  Sender: FDA-Public Use
  Company Number: US-BRISTOL-MYERS SQUIBB COMPANY-16970592

PATIENT
  Age: 64 Year
  Sex: Female
  Weight: 73.47 kg

DRUGS (1)
  1. ORENCIA FOR INJ [Suspect]
     Indication: RHEUMATOID ARTHRITIS
     Dosage: NO OF INJ:2?LAST INJ:15SEP12?LOT#1K67562?EXP:SEP13
     Route: 058
     Dates: start: 201203

REACTIONS (1)
  - Basal cell carcinoma [Unknown]
